FAERS Safety Report 23164394 (Version 2)
Quarter: 2024Q1

REPORT INFORMATION
  Report Type: Spontaneous
  Country: US (occurrence: US)
  Receive Date: 20231109
  Receipt Date: 20240320
  Transmission Date: 20240410
  Serious: Yes (Hospitalization)
  Sender: FDA-Public Use
  Company Number: US-INSMED, INC.-2023-01517-US

PATIENT
  Sex: Female

DRUGS (3)
  1. ARIKAYCE [Suspect]
     Active Substance: AMIKACIN
     Indication: Bacterial disease carrier
     Dosage: 590 MILLIGRAM, 28 DAYS ON, 28 DAYS OFF
     Route: 055
     Dates: start: 20220831, end: 2023
  2. ARIKAYCE [Suspect]
     Active Substance: AMIKACIN
     Dosage: 590 MILLIGRAM, TWO WEEKS ON AND TWO WEEKS OFF
     Route: 055
     Dates: start: 2023, end: 2023
  3. ARIKAYCE [Suspect]
     Active Substance: AMIKACIN
     Dosage: 590 MILLIGRAM, TWO WEEKS ON AND TWO WEEKS OFF
     Route: 055
     Dates: start: 2023

REACTIONS (7)
  - Hospitalisation [Unknown]
  - Swelling face [Unknown]
  - Visual impairment [Unknown]
  - Off label use [Unknown]
  - Intentional dose omission [Unknown]
  - Product dose omission issue [Unknown]
  - Therapy interrupted [Unknown]
